FAERS Safety Report 9331900 (Version 2)
Quarter: 2013Q3

REPORT INFORMATION
  Report Type: Spontaneous
  Country: US (occurrence: US)
  Receive Date: 20130605
  Receipt Date: 20130708
  Transmission Date: 20140515
  Serious: No
  Sender: FDA-Public Use
  Company Number: US-009507513-1305USA016181

PATIENT
  Age: 56 Year
  Sex: Female
  Weight: 65.76 kg

DRUGS (6)
  1. PEGINTRON [Suspect]
     Dosage: 120MCG/0.5ML VIAL , DILUTE THE VIAL WITH 0.7ML AND INJECT 107 MCG(0.45ML)
     Route: 058
  2. VICTRELIS [Suspect]
     Route: 048
  3. RIBAVIRIN [Suspect]
  4. TYLENOL [Concomitant]
  5. OMEPRAZOLE [Concomitant]
  6. IBUPROFEN [Concomitant]

REACTIONS (2)
  - Influenza like illness [Unknown]
  - Nausea [Unknown]
